FAERS Safety Report 6524948-7 (Version None)
Quarter: 2010Q1

REPORT INFORMATION
  Report Type: 
  Country: None (occurrence: None)
  Receive Date: 20100104
  Receipt Date: 20091221
  Transmission Date: 20100710
  Serious: Yes (Other)
  Sender: FDA-Public Use
  Company Number: DE-CELGENEUS-062-20785-09121745

PATIENT

DRUGS (7)
  1. THALOMID [Suspect]
     Indication: CROHN'S DISEASE
     Dosage: 50-100MG
     Route: 048
  2. MESALAZINE [Concomitant]
     Indication: CROHN'S DISEASE
     Route: 065
  3. 6-MERCAPTOPURIN [Concomitant]
     Indication: CROHN'S DISEASE
     Route: 065
  4. AZATHIOPRINE [Concomitant]
     Indication: CROHN'S DISEASE
     Route: 065
  5. METHOTREXATE [Concomitant]
     Indication: CROHN'S DISEASE
     Route: 065
  6. GLUCOCORTICOSTEROIDS [Concomitant]
     Indication: CROHN'S DISEASE
     Route: 065
  7. ANTIBIOTICS [Concomitant]
     Indication: CROHN'S DISEASE
     Route: 065

REACTIONS (13)
  - BLOOD PRESSURE INCREASED [None]
  - CONSTIPATION [None]
  - FATIGUE [None]
  - MUSCLE SPASMS [None]
  - NEUROPATHY PERIPHERAL [None]
  - NO THERAPEUTIC RESPONSE [None]
  - OEDEMA PERIPHERAL [None]
  - POLYNEUROPATHY [None]
  - PRURITUS [None]
  - RASH [None]
  - SEBORRHOEA [None]
  - SOMNOLENCE [None]
  - SURGERY [None]
